FAERS Safety Report 4728150-0 (Version None)
Quarter: 2005Q3

REPORT INFORMATION
  Report Type: 
  Country: None (occurrence: None)
  Receive Date: 20050728
  Receipt Date: 20050728
  Transmission Date: 20060218
  Serious: Yes (Hospitalization)
  Sender: FDA-Public Use
  Company Number: None

PATIENT
  Sex: Male
  Weight: 95.2554 kg

DRUGS (1)
  1. TUBERCULIN 5TU/0.1ML - 50ML VIAL - PARKEDALE [Suspect]
     Indication: TUBERCULIN TEST
     Dosage: 0.1ML ANNUAL INTRADERMA
     Route: 023
     Dates: start: 20050719, end: 20050719

REACTIONS (6)
  - DRUG EFFECT DECREASED [None]
  - HEART RATE INCREASED [None]
  - PRURITUS [None]
  - RASH ERYTHEMATOUS [None]
  - RASH GENERALISED [None]
  - THROAT TIGHTNESS [None]
